FAERS Safety Report 24075847 (Version 1)
Quarter: 2024Q3

REPORT INFORMATION
  Report Type: Spontaneous
  Country: US (occurrence: US)
  Receive Date: 20240710
  Receipt Date: 20240710
  Transmission Date: 20241017
  Serious: Yes (Hospitalization, Other)
  Sender: AMGEN
  Company Number: US-AMGEN-USASP2024133026

PATIENT
  Age: 71 Year
  Sex: Female

DRUGS (2)
  1. PREDNISONE [Suspect]
     Active Substance: PREDNISONE
     Indication: Product used for unknown indication
     Dosage: UNK
     Route: 065
  2. URSODIOL [Concomitant]
     Active Substance: URSODIOL
     Indication: Product used for unknown indication
     Dosage: UNK
     Route: 065

REACTIONS (10)
  - Distributive shock [Unknown]
  - Lymphocytic hypophysitis [Unknown]
  - Langerhans^ cell histiocytosis [Unknown]
  - Pancreatitis necrotising [Unknown]
  - Diabetes insipidus [Unknown]
  - Cholangitis sclerosing [Unknown]
  - Hepatic cirrhosis [Unknown]
  - Leukocytosis [Unknown]
  - Hypopituitarism [Unknown]
  - Drug ineffective [Unknown]
